FAERS Safety Report 25010348 (Version 2)
Quarter: 2025Q3

REPORT INFORMATION
  Report Type: Report from Study
  Country: US (occurrence: US)
  Receive Date: 20250225
  Receipt Date: 20250810
  Transmission Date: 20251021
  Serious: Yes (Other)
  Sender: ALEXION PHARMACEUTICALS
  Company Number: US-ASTRAZENECA-202502USA015484US

PATIENT
  Age: 57 Year
  Sex: Female

DRUGS (1)
  1. STRENSIQ [Suspect]
     Active Substance: ASFOTASE ALFA
     Indication: Phosphorus metabolism disorder
     Dosage: 51 MILLIGRAM, SIX TIMES/WEEK
     Route: 065

REACTIONS (7)
  - Corneal dystrophy [Unknown]
  - Cataract [Unknown]
  - Skin lesion [Unknown]
  - Retinal degeneration [Unknown]
  - Dysphagia [Unknown]
  - Gait disturbance [Unknown]
  - Keratopathy [Unknown]
